FAERS Safety Report 8014301-1 (Version None)
Quarter: 2011Q4

REPORT INFORMATION
  Report Type: 
  Country: None (occurrence: None)
  Receive Date: 20111229
  Receipt Date: 20111219
  Transmission Date: 20120403
  Serious: Yes (Other)
  Sender: FDA-Public Use
  Company Number: DE-GLAXOSMITHKLINE-D0073857A

PATIENT
  Age: 52 Year
  Sex: Female

DRUGS (5)
  1. REQUIP [Suspect]
     Indication: PARKINSON'S DISEASE
     Dosage: 12MG PER DAY
     Route: 048
  2. PANTOPRAZOLE [Concomitant]
     Route: 065
  3. AMANTADINE HCL [Concomitant]
     Route: 065
  4. RAMIPRIL [Concomitant]
     Dosage: 5MG PER DAY
     Route: 065
  5. CITALOPRAM [Concomitant]
     Dosage: 20MG PER DAY
     Route: 065

REACTIONS (6)
  - ABDOMINAL PAIN UPPER [None]
  - CREPITATIONS [None]
  - DIZZINESS [None]
  - HEPATIC ENZYME INCREASED [None]
  - SLEEP DISORDER [None]
  - FATIGUE [None]
